FAERS Safety Report 12987320 (Version 2)
Quarter: 2016Q4

REPORT INFORMATION
  Report Type: Spontaneous
  Country: KR (occurrence: KR)
  Receive Date: 20161130
  Receipt Date: 20161206
  Transmission Date: 20170207
  Serious: Yes (Other)
  Sender: FDA-Public Use
  Company Number: KR-BAYER-2016-217584

PATIENT
  Age: 50 Year
  Sex: Male

DRUGS (4)
  1. NEXAVAR [Suspect]
     Active Substance: SORAFENIB
     Indication: HEPATOCELLULAR CARCINOMA
     Dosage: 400 MG DAILY DOSE
  2. NEXAVAR [Suspect]
     Active Substance: SORAFENIB
     Indication: HEPATOCELLULAR CARCINOMA
     Dosage: 800 MG DAILY DOSE
  3. NEXAVAR [Suspect]
     Active Substance: SORAFENIB
     Indication: HEPATOCELLULAR CARCINOMA
     Dosage: 400 MG DAILY DOSE
  4. NEXAVAR [Suspect]
     Active Substance: SORAFENIB
     Indication: HEPATOCELLULAR CARCINOMA
     Dosage: UNK
     Route: 048

REACTIONS (12)
  - Anal ulcer [Recovering/Resolving]
  - Skin lesion [Recovering/Resolving]
  - Skin exfoliation [Recovering/Resolving]
  - Oedema peripheral [Not Recovered/Not Resolved]
  - Pain [Recovering/Resolving]
  - Dermatitis [Recovering/Resolving]
  - Skin haemorrhage [Recovering/Resolving]
  - Scrotal erythema [Not Recovered/Not Resolved]
  - Scrotal ulcer [Recovering/Resolving]
  - Genital lesion [Recovering/Resolving]
  - Erythema [Not Recovered/Not Resolved]
  - Perineal erythema [Not Recovered/Not Resolved]
